FAERS Safety Report 4316975-5 (Version None)
Quarter: 2004Q1

REPORT INFORMATION
  Report Type: 
  Country: None (occurrence: None)
  Receive Date: 20040312
  Receipt Date: 20040301
  Transmission Date: 20041129
  Serious: Yes (Hospitalization)
  Sender: FDA-Public Use
  Company Number: US-JNJFOC-20040301053

PATIENT
  Sex: Male

DRUGS (1)
  1. REMICADE [Suspect]
     Indication: RHEUMATOID ARTHRITIS
     Dosage: INTRAVENOUS
     Route: 042
     Dates: start: 20030220, end: 20030220

REACTIONS (7)
  - ANHEDONIA [None]
  - ANXIETY [None]
  - DRY GANGRENE [None]
  - FOOT AMPUTATION [None]
  - INJURY [None]
  - MENTAL IMPAIRMENT [None]
  - PAIN [None]
